FAERS Safety Report 9464126 (Version 1)
Quarter: 2013Q3

REPORT INFORMATION
  Report Type: Spontaneous
  Country: IN (occurrence: IN)
  Receive Date: 20130819
  Receipt Date: 20130819
  Transmission Date: 20140515
  Serious: Yes (Death)
  Sender: FDA-Public Use
  Company Number: IN-MYLANLABS-2013S1017570

PATIENT
  Sex: Female

DRUGS (5)
  1. METHOTREXATE [Suspect]
     Indication: MALIGNANT HYDATIDIFORM MOLE
     Route: 030
  2. FOLINIC ACID [Concomitant]
     Indication: MALIGNANT HYDATIDIFORM MOLE
     Dosage: 15MG ON INTERVENING DAYS
     Route: 065
  3. PARACETAMOL [Concomitant]
     Indication: PYREXIA
     Route: 065
  4. CEFTRIAXONE [Concomitant]
     Indication: PYREXIA
     Route: 042
  5. GENTAMICIN [Concomitant]
     Indication: PYREXIA
     Route: 042

REACTIONS (5)
  - Mucosal inflammation [Fatal]
  - Pancytopenia [Fatal]
  - Toxicity to various agents [Fatal]
  - Vomiting [Not Recovered/Not Resolved]
  - Cardiac arrest [Fatal]
